FAERS Safety Report 6394008-7 (Version None)
Quarter: 2009Q4

REPORT INFORMATION
  Report Type: 
  Country: None (occurrence: None)
  Receive Date: 20091008
  Receipt Date: 20090929
  Transmission Date: 20100525
  Serious: Yes (Other)
  Sender: FDA-Public Use
  Company Number: PHHY2009GB42371

PATIENT
  Age: 42 Year
  Sex: Male

DRUGS (5)
  1. TEGRETOL [Suspect]
     Indication: EPILEPSY
     Dosage: 600 MG
  2. TEGRETOL [Suspect]
     Dosage: 1700 MG
  3. TEGRETOL [Suspect]
     Dosage: 1200 MG
  4. TEGRETOL [Suspect]
     Dosage: 800 MG
  5. VALPROATE SODIUM [Suspect]

REACTIONS (5)
  - ANTICONVULSANT DRUG LEVEL INCREASED [None]
  - DIZZINESS [None]
  - DRUG WITHDRAWAL CONVULSIONS [None]
  - LABYRINTHITIS [None]
  - MALAISE [None]
